FAERS Safety Report 21812818 (Version 1)
Quarter: 2023Q1

REPORT INFORMATION
  Report Type: Spontaneous
  Country: SK (occurrence: SK)
  Receive Date: 20230103
  Receipt Date: 20230103
  Transmission Date: 20230418
  Serious: Yes (Other)
  Sender: FDA-Public Use
  Company Number: SK-SK LIFE SCIENCE, INC-SKPVG-2022-001003

PATIENT

DRUGS (4)
  1. XCOPRI [Suspect]
     Active Substance: CENOBAMATE
     Indication: Epilepsy
     Dosage: 12.5 MILLIGRAM, QD
     Route: 048
     Dates: start: 20221123
  2. BRIVIACT [Concomitant]
     Active Substance: BRIVARACETAM
     Indication: Product used for unknown indication
     Dosage: 200 MILLIGRAM, QD, LONGTERMLY
     Route: 048
  3. EPILAN D                           /00017401/ [Concomitant]
     Indication: Product used for unknown indication
     Dosage: 400 MILLIGRAM, QD, LONGTERMLY
     Route: 048
  4. FYCOMPA [Concomitant]
     Active Substance: PERAMPANEL
     Indication: Product used for unknown indication
     Dosage: 8 MILLIGRAM, QD, LONGTERMLY
     Route: 048

REACTIONS (1)
  - Derealisation [Unknown]

NARRATIVE: CASE EVENT DATE: 20221203
